FAERS Safety Report 6913495-6 (Version None)
Quarter: 2010Q3

REPORT INFORMATION
  Report Type: 
  Country: None (occurrence: None)
  Receive Date: 20100803
  Receipt Date: 20100719
  Transmission Date: 20110219
  Serious: Yes (Hospitalization)
  Sender: FDA-Public Use
  Company Number: 016255

PATIENT
  Age: 14 Month
  Sex: Female
  Weight: 9.5 kg

DRUGS (1)
  1. EQUASYM (EQUASYM RETARD) [Suspect]
     Dosage: (2.25DF, ONE DOSE, ORAL, 30MG CAPSULES ORAL)
     Route: 048
     Dates: start: 20100711, end: 20100711

REACTIONS (1)
  - ACCIDENTAL DRUG INTAKE BY CHILD [None]
